FAERS Safety Report 5627490-0 (Version None)
Quarter: 2008Q1

REPORT INFORMATION
  Report Type: 
  Country: None (occurrence: None)
  Receive Date: 20080215
  Receipt Date: 20071204
  Transmission Date: 20080703
  Serious: No
  Sender: FDA-Public Use
  Company Number: A0686134A

PATIENT
  Sex: Female

DRUGS (4)
  1. COREG CR [Suspect]
     Indication: HYPERTENSION
     Dosage: 80MG PER DAY
     Route: 048
     Dates: start: 20070914
  2. DIOVAN HCT [Concomitant]
  3. SYNTHROID [Concomitant]
  4. FOSAMAX [Concomitant]

REACTIONS (3)
  - NOCTURIA [None]
  - NONSPECIFIC REACTION [None]
  - RHINORRHOEA [None]
